FAERS Safety Report 5143347-6 (Version None)
Quarter: 2006Q4

REPORT INFORMATION
  Report Type: 
  Country: None (occurrence: None)
  Receive Date: 20061103
  Receipt Date: 20061027
  Transmission Date: 20070319
  Serious: Yes (Other)
  Sender: FDA-Public Use
  Company Number: PT-JNJFOC-20061006906

PATIENT
  Sex: Female

DRUGS (2)
  1. TYLENOL [Suspect]
     Route: 048
  2. TYLENOL [Suspect]
     Indication: INFLUENZA
     Route: 048

REACTIONS (3)
  - DIZZINESS [None]
  - DYSPNOEA [None]
  - RASH GENERALISED [None]
